FAERS Safety Report 8961618 (Version 1)
Quarter: 2012Q4

REPORT INFORMATION
  Report Type: 
  Country: JP (occurrence: JP)
  Receive Date: 20121212
  Receipt Date: 20121212
  Transmission Date: 20130627
  Serious: No
  Sender: FDA-Public Use
  Company Number: JP-UCBSA-065579

PATIENT
  Age: 59 Year
  Sex: Female
  Weight: 43 kg

DRUGS (4)
  1. E KEPPRA [Suspect]
     Indication: STATUS EPILEPTICUS
     Route: 048
     Dates: start: 20120303, end: 20120906
  2. VALERIN [Concomitant]
     Indication: STATUS EPILEPTICUS
     Dosage: TOTAL DAILY DOSE: 600MG
     Route: 048
     Dates: start: 20111130
  3. PHENOBAL [Concomitant]
     Indication: STATUS EPILEPTICUS
     Dosage: TOTAL DAILY DOSE: 0.9 G
     Route: 048
     Dates: start: 20111130
  4. REBAMIPIDE [Concomitant]
     Indication: GASTRITIS
     Dosage: TOTAL DAILY DOSE: 300 MG
     Route: 048
     Dates: start: 20111130

REACTIONS (1)
  - Arthritis [Recovered/Resolved]
